FAERS Safety Report 15573382 (Version 1)
Quarter: 2018Q4

REPORT INFORMATION
  Report Type: Spontaneous
  Country: GB (occurrence: GB)
  Receive Date: 20181101
  Receipt Date: 20181101
  Transmission Date: 20190205
  Serious: Yes (Other)
  Sender: FDA-Public Use
  Company Number: GB-CIPLA LTD.-2018GB22131

PATIENT

DRUGS (4)
  1. INDOMETHACIN                       /00003801/ [Suspect]
     Active Substance: INDOMETHACIN
     Indication: CLUSTER HEADACHE
     Dosage: UNK
     Route: 065
  2. VERAPAMIL [Suspect]
     Active Substance: VERAPAMIL HYDROCHLORIDE
     Indication: CLUSTER HEADACHE
     Dosage: UNK
     Route: 065
  3. TOPIRAMATE. [Suspect]
     Active Substance: TOPIRAMATE
     Indication: CLUSTER HEADACHE
     Dosage: UNK
     Route: 065
  4. LITHIUM. [Suspect]
     Active Substance: LITHIUM
     Indication: CLUSTER HEADACHE
     Dosage: UNK
     Route: 065

REACTIONS (1)
  - Treatment failure [Unknown]
